FAERS Safety Report 13383589 (Version 1)
Quarter: 2017Q1

REPORT INFORMATION
  Report Type: Spontaneous
  Country: US (occurrence: US)
  Receive Date: 20170329
  Receipt Date: 20170329
  Transmission Date: 20170429
  Serious: No
  Sender: FDA-Public Use
  Company Number: US-JNJFOC-20170321823

PATIENT
  Age: 70 Year
  Sex: Male
  Weight: 72.58 kg

DRUGS (11)
  1. ZYRTEC [Suspect]
     Active Substance: CETIRIZINE HYDROCHLORIDE
     Indication: SEASONAL ALLERGY
     Dosage: 1 TABLET EVERY NIGHT FOR SEVERAL YEARS (BACK IN 2014)
     Route: 048
  2. ZYRTEC [Suspect]
     Active Substance: CETIRIZINE HYDROCHLORIDE
     Indication: INFLUENZA
     Dosage: 1 TABLET EVERY NIGHT FOR SEVERAL YEARS (BACK IN 2014)
     Route: 048
  3. BABY ASPIRIN [Concomitant]
     Active Substance: ASPIRIN
     Indication: ANTICOAGULANT THERAPY
     Route: 065
  4. ZYRTEC [Suspect]
     Active Substance: CETIRIZINE HYDROCHLORIDE
     Indication: ALLERGY TO ANIMAL
     Dosage: 1 TABLET EVERY NIGHT FOR SEVERAL YEARS (BACK IN 2014)
     Route: 048
  5. ZYRTEC [Suspect]
     Active Substance: CETIRIZINE HYDROCHLORIDE
     Indication: PRURITUS
     Dosage: 1 TABLET EVERY NIGHT FOR SEVERAL YEARS (BACK IN 2014)
     Route: 048
  6. ZYRTEC [Suspect]
     Active Substance: CETIRIZINE HYDROCHLORIDE
     Indication: GASTRIC DISORDER
     Dosage: 1 TABLET EVERY NIGHT FOR SEVERAL YEARS (BACK IN 2014)
     Route: 048
  7. ZYRTEC [Suspect]
     Active Substance: CETIRIZINE HYDROCHLORIDE
     Indication: HEADACHE
     Dosage: 1 TABLET EVERY NIGHT FOR SEVERAL YEARS (BACK IN 2014)
     Route: 048
  8. ZYRTEC [Suspect]
     Active Substance: CETIRIZINE HYDROCHLORIDE
     Indication: FEELING HOT
     Dosage: 1 TABLET EVERY NIGHT FOR SEVERAL YEARS (BACK IN 2014)
     Route: 048
  9. ZYRTEC [Suspect]
     Active Substance: CETIRIZINE HYDROCHLORIDE
     Indication: SKIN REACTION
     Dosage: 1 TABLET EVERY NIGHT FOR SEVERAL YEARS (BACK IN 2014)
     Route: 048
  10. ZYRTEC [Suspect]
     Active Substance: CETIRIZINE HYDROCHLORIDE
     Indication: RASH
     Dosage: 1 TABLET EVERY NIGHT FOR SEVERAL YEARS (BACK IN 2014)
     Route: 048
  11. BENAZEPRIL [Concomitant]
     Active Substance: BENAZEPRIL HYDROCHLORIDE
     Indication: HYPERTENSION
     Route: 065

REACTIONS (4)
  - Product use issue [Recovering/Resolving]
  - Therapeutic response unexpected [Unknown]
  - Somnolence [Recovering/Resolving]
  - Fatigue [Recovering/Resolving]

NARRATIVE: CASE EVENT DATE: 20170319
